FAERS Safety Report 17213257 (Version 1)
Quarter: 2019Q4

REPORT INFORMATION
  Report Type: Spontaneous
  Country: BR (occurrence: BR)
  Receive Date: 20191230
  Receipt Date: 20191230
  Transmission Date: 20200122
  Serious: Yes (Other)
  Sender: FDA-Public Use
  Company Number: NVSC2019BR081739

PATIENT
  Age: 63 Year
  Sex: Female
  Weight: 67 kg

DRUGS (7)
  1. LOSARTAN. [Suspect]
     Active Substance: LOSARTAN
     Indication: HYPERTENSION
     Dosage: 1 DF, QD (STARTED 8 YEARS AGO)
     Route: 048
  2. ATENOLOL SANDOZ 25 MG TABLETIT [Suspect]
     Active Substance: ATENOLOL
     Indication: BLOOD PRESSURE INCREASED
     Dosage: 1 DF, QD (STARTED 8 YEARS AGO)
     Route: 048
  3. NPH INSULIN [Concomitant]
     Active Substance: INSULIN BEEF
     Indication: DIABETES MELLITUS
     Dosage: 30 IU, QD (16 IU IN MORNING AND 14 IU IN NIGHT) (ADMINISTERED IN BELLY) AND STARTED 4 YEARS AGO
     Route: 065
  4. METFORMIN [Concomitant]
     Active Substance: METFORMIN HYDROCHLORIDE
     Indication: DIABETES MELLITUS
     Dosage: 1 DF, QD (5 TO 6 YEARS AGO)
     Route: 048
  5. DIAMICRON [Concomitant]
     Active Substance: GLICLAZIDE
     Indication: DIABETES MELLITUS
     Dosage: 1 OT, QD (1 TABLET AND A HALF), 5 TO 6 YEARS AGO
     Route: 048
  6. AZORGA [Concomitant]
     Active Substance: BRINZOLAMIDE\TIMOLOL MALEATE
     Indication: BLOOD PRESSURE INCREASED
     Dosage: 1 OT, BID (1 DROP ON EACH EYE) (STARTED 5 YEARS AGO)
     Route: 065
  7. INSULIN LISTRO [Concomitant]
     Indication: DIABETES MELLITUS
     Dosage: 7 IU, QD (3 IU IN MORNIGN, 2 IU IN AFTERNOON AND 2 UI IN NIGHT (ADMINISTERED IN BELLY)) (STARTED 4 Y
     Route: 065

REACTIONS (5)
  - Blister [Not Recovered/Not Resolved]
  - Haemorrhage [Recovered/Resolved]
  - Retinal detachment [Recovered/Resolved]
  - Intraocular pressure increased [Unknown]
  - Eye swelling [Not Recovered/Not Resolved]

NARRATIVE: CASE EVENT DATE: 20190615
